FAERS Safety Report 7313286-0 (Version None)
Quarter: 2011Q1

REPORT INFORMATION
  Report Type: 
  Country: None (occurrence: None)
  Receive Date: 20110225
  Receipt Date: 20110216
  Transmission Date: 20110831
  Serious: Yes (Hospitalization, Disabling)
  Sender: FDA-Public Use
  Company Number: CA-ASTRAZENECA-2011SE08961

PATIENT
  Age: 28110 Day
  Sex: Female
  Weight: 68 kg

DRUGS (10)
  1. FULVESTRANT [Suspect]
     Indication: BREAST CANCER METASTATIC
     Route: 030
     Dates: start: 20101216
  2. CALCIUM [Concomitant]
     Indication: MEDICAL DIET
     Dates: start: 20041101
  3. VITAMIN D [Concomitant]
     Indication: MEDICAL DIET
     Dates: start: 20041101
  4. METOPROLOL SUCCINATE [Concomitant]
     Indication: HYPERTENSION
     Dates: start: 20000101
  5. HYDROCHLOROTHIAZIDE [Concomitant]
     Indication: HYPERTENSION
     Dates: start: 20000101
  6. PRAVASTATIN [Concomitant]
     Indication: HYPERCHOLESTEROLAEMIA
     Dates: start: 20000101
  7. TYLENOL [Concomitant]
     Indication: PAIN
     Dates: start: 20060101
  8. CLODRONATE [Concomitant]
     Indication: BONE CANCER METASTATIC
     Dates: start: 20040101
  9. ZD6474 [Suspect]
     Indication: BREAST CANCER METASTATIC
     Route: 048
     Dates: start: 20101216
  10. ELTROXIN [Concomitant]
     Indication: HYPOTHYROIDISM
     Dates: start: 20000101

REACTIONS (1)
  - MUCOSAL INFLAMMATION [None]
